FAERS Safety Report 7171063-8 (Version None)
Quarter: 2010Q4

REPORT INFORMATION
  Report Type: 
  Country: None (occurrence: None)
  Receive Date: 20101217
  Receipt Date: 20101208
  Transmission Date: 20110411
  Serious: Yes (Life-Threatening)
  Sender: FDA-Public Use
  Company Number: GXKR2010NL13962

PATIENT
  Sex: Male

DRUGS (5)
  1. OXAZEPAM [Suspect]
     Dosage: ONE TABLET 1-2 DAILY
     Route: 048
     Dates: start: 20101122
  2. BUPRENORPHINE [Suspect]
     Dosage: 5 UG/HR, QW
     Route: 062
     Dates: start: 20100923, end: 20101123
  3. METAMUCIL-2 [Concomitant]
     Dosage: 1 DF, QD
     Dates: start: 20100322
  4. MOVICOLON [Concomitant]
     Dosage: 1 DF, QD
     Route: 065
     Dates: start: 20100906
  5. PROPRANOLOL [Concomitant]
     Dosage: 1 DF1-2 DAILY
     Route: 065
     Dates: start: 20101122

REACTIONS (1)
  - SUICIDAL IDEATION [None]
